FAERS Safety Report 5389291-0 (Version None)
Quarter: 2007Q3

REPORT INFORMATION
  Report Type: 
  Country: None (occurrence: None)
  Receive Date: 20070713
  Receipt Date: 20070702
  Transmission Date: 20080115
  Serious: Yes (Death)
  Sender: FDA-Public Use
  Company Number: B0478567A

PATIENT
  Age: 60 Year
  Sex: Female

DRUGS (2)
  1. TOSITUMOMAB (TOSITUMOMAB) (FORMULATION UNKNOWN) (GENERIC) [Suspect]
     Indication: NON-HODGKIN'S LYMPHOMA
  2. FLUDARABINE PHOSPHATE [Concomitant]

REACTIONS (2)
  - CYTOGENETIC ANALYSIS ABNORMAL [None]
  - ERYTHROLEUKAEMIA [None]
